FAERS Safety Report 20318154 (Version 1)
Quarter: 2022Q1

REPORT INFORMATION
  Report Type: Spontaneous
  Country: US (occurrence: None)
  Receive Date: 20220110
  Receipt Date: 20220110
  Transmission Date: 20220424
  Serious: Yes (Other)
  Sender: FDA-Public Use
  Company Number: US-ROCHE-2996004

PATIENT
  Sex: Female

DRUGS (2)
  1. RITUXAN [Suspect]
     Active Substance: RITUXIMAB
     Indication: Product used for unknown indication
     Route: 065
  2. RITUXAN HYCELA [Suspect]
     Active Substance: HYALURONIDASE (HUMAN RECOMBINANT)\RITUXIMAB
     Indication: Product used for unknown indication
     Route: 058

REACTIONS (21)
  - Peripheral swelling [Unknown]
  - Cardiac disorder [Unknown]
  - Allergy to chemicals [Unknown]
  - COVID-19 [Unknown]
  - Drug ineffective [Unknown]
  - Malaise [Unknown]
  - Neoplasm progression [Unknown]
  - Pyrexia [Unknown]
  - Chills [Unknown]
  - Dizziness [Unknown]
  - Diplopia [Unknown]
  - Skin exfoliation [Unknown]
  - Palpitations [Unknown]
  - Fatigue [Unknown]
  - Headache [Unknown]
  - Adverse drug reaction [Unknown]
  - Unevaluable event [Unknown]
  - Ill-defined disorder [Unknown]
  - Pneumonia viral [Unknown]
  - Lymphoma [Unknown]
  - Brain neoplasm [Unknown]
